FAERS Safety Report 18133167 (Version 1)
Quarter: 2020Q3

REPORT INFORMATION
  Report Type: Spontaneous
  Country: AR (occurrence: AR)
  Receive Date: 20200811
  Receipt Date: 20200811
  Transmission Date: 20201103
  Serious: Yes (Other)
  Sender: FDA-Public Use
  Company Number: AR-ROCHE-2654929

PATIENT
  Age: 65 Year
  Sex: Male

DRUGS (2)
  1. GAZYVA [Suspect]
     Active Substance: OBINUTUZUMAB
     Indication: B-CELL LYMPHOMA RECURRENT
     Dosage: 6 CYCLES
     Route: 065
     Dates: start: 2019
  2. BENDAMUSTINE [Concomitant]
     Active Substance: BENDAMUSTINE
     Indication: B-CELL LYMPHOMA RECURRENT
     Dosage: 6 CYCLES
     Dates: start: 2019

REACTIONS (2)
  - Blood lactate dehydrogenase increased [Unknown]
  - Positron emission tomogram abnormal [Unknown]
